FAERS Safety Report 24595046 (Version 1)
Quarter: 2024Q4

REPORT INFORMATION
  Report Type: Spontaneous
  Country: JP (occurrence: JP)
  Receive Date: 20241108
  Receipt Date: 20241108
  Transmission Date: 20250115
  Serious: Yes (Death, Other)
  Sender: MERCK
  Company Number: JP-MSD-2411JPN000449J

PATIENT
  Age: 50 Year
  Sex: Female

DRUGS (2)
  1. KEYTRUDA [Suspect]
     Active Substance: PEMBROLIZUMAB
     Indication: Endometrial cancer
     Dosage: UNK
     Route: 065
  2. LENVATINIB MESYLATE [Suspect]
     Active Substance: LENVATINIB MESYLATE
     Indication: Endometrial cancer
     Dosage: UNK
     Route: 065

REACTIONS (5)
  - Death [Fatal]
  - Malignant neoplasm progression [Unknown]
  - Decreased appetite [Unknown]
  - Malaise [Unknown]
  - Proteinuria [Unknown]
